FAERS Safety Report 8128223-9 (Version None)
Quarter: 2012Q1

REPORT INFORMATION
  Report Type: 
  Country: None (occurrence: None)
  Receive Date: 20120210
  Receipt Date: 20120203
  Transmission Date: 20120608
  Serious: Yes (Hospitalization, Other)
  Sender: FDA-Public Use
  Company Number: BR-ABBOTT-12P-020-0901289-00

PATIENT
  Sex: Female
  Weight: 62 kg

DRUGS (4)
  1. MOTILIUM [Concomitant]
     Indication: CROHN'S DISEASE
     Route: 048
  2. HUMIRA [Suspect]
     Indication: CROHN'S DISEASE
     Dosage: (160MG INDUCTION DOSE)
     Route: 058
     Dates: start: 20110401
  3. HUMIRA [Suspect]
     Route: 058
  4. HUMIRA [Suspect]
     Dosage: (80MG)
     Route: 058

REACTIONS (7)
  - GASTROINTESTINAL INFECTION [None]
  - INTESTINAL RESECTION [None]
  - GASTRITIS [None]
  - PYREXIA [None]
  - COLITIS ULCERATIVE [None]
  - INTESTINAL OBSTRUCTION [None]
  - PAIN [None]
